FAERS Safety Report 6913433-6 (Version None)
Quarter: 2010Q3

REPORT INFORMATION
  Report Type: 
  Country: None (occurrence: None)
  Receive Date: 20100809
  Receipt Date: 20100803
  Transmission Date: 20110219
  Serious: Yes (Other)
  Sender: FDA-Public Use
  Company Number: US-B.I. PHARMACEUTICALS,INC./RIDGEFIELD-2010-BP-04546PF

PATIENT
  Sex: Female
  Weight: 136.08 kg

DRUGS (12)
  1. SPIRIVA [Suspect]
     Indication: DYSPNOEA
     Dosage: 36 MCG
  2. LYRICA [Suspect]
     Indication: NEUROPATHY PERIPHERAL
     Dosage: 300 MG
     Route: 048
     Dates: start: 20080101
  3. CELEBREX [Suspect]
     Indication: NEUROPATHY PERIPHERAL
     Dosage: 400 MG
     Route: 048
     Dates: start: 20080101
  4. CELEBREX [Suspect]
     Indication: ARTHRITIS
  5. LISINOPRIL [Concomitant]
     Dosage: 20 MG
  6. VENTOLIN [Concomitant]
     Dosage: 2 PUF
     Route: 055
  7. SIMVASTATIN [Concomitant]
     Dosage: 20 MG
  8. METFORMIN HCL [Concomitant]
     Dosage: 2000 MG
  9. LASIX [Concomitant]
     Dosage: 80 MG
  10. POTASSIUM [Concomitant]
     Dosage: 20 MG
  11. INSULIN NOVOLOG 70/30 [Concomitant]
  12. OXYGEN [Concomitant]

REACTIONS (2)
  - CONDITION AGGRAVATED [None]
  - IMPAIRED WORK ABILITY [None]
